APPROVED DRUG PRODUCT: CHLORPROMAZINE HYDROCHLORIDE
Active Ingredient: CHLORPROMAZINE HYDROCHLORIDE
Strength: 100MG
Dosage Form/Route: TABLET;ORAL
Application: A087884 | Product #001
Applicant: WEST WARD PHARMACEUTICAL CORP
Approved: Sep 15, 1982 | RLD: No | RS: No | Type: DISCN